FAERS Safety Report 22138329 (Version 6)
Quarter: 2024Q1

REPORT INFORMATION
  Report Type: Report from Study
  Country: CA (occurrence: CA)
  Receive Date: 20230326
  Receipt Date: 20240105
  Transmission Date: 20240410
  Serious: Yes (Other)
  Sender: FDA-Public Use
  Company Number: CA-JNJFOC-20230355847

PATIENT
  Age: 15 Year
  Sex: Male
  Weight: 64 kg

DRUGS (1)
  1. REMICADE [Suspect]
     Active Substance: INFLIXIMAB
     Indication: Crohn^s disease
     Dosage: THERAPY START DATE: 13-JUN-2014, EXPIRATION DATE: 30-SEP-2025
     Route: 041
     Dates: start: 20140610, end: 20231016

REACTIONS (5)
  - Infection [Recovered/Resolved]
  - Postoperative wound infection [Recovered/Resolved]
  - Jaw operation [Recovering/Resolving]
  - Secretion discharge [Recovering/Resolving]
  - Bone fistula [Recovering/Resolving]

NARRATIVE: CASE EVENT DATE: 20180501
